FAERS Safety Report 6634106-3 (Version None)
Quarter: 2010Q1

REPORT INFORMATION
  Report Type: 
  Country: None (occurrence: None)
  Receive Date: 20100315
  Receipt Date: 20100310
  Transmission Date: 20100710
  Serious: Yes (Death)
  Sender: FDA-Public Use
  Company Number: GB-ASTRAZENECA-2009SE26456

PATIENT
  Sex: Male

DRUGS (1)
  1. MERONEM [Suspect]
     Route: 042

REACTIONS (2)
  - HAEMORRHAGE [None]
  - HEPATIC ENZYME INCREASED [None]
